FAERS Safety Report 21844530 (Version 1)
Quarter: 2023Q1

REPORT INFORMATION
  Report Type: Spontaneous
  Country: FR (occurrence: FR)
  Receive Date: 20230110
  Receipt Date: 20230110
  Transmission Date: 20230417
  Serious: Yes (Other)
  Sender: FDA-Public Use
  Company Number: None

PATIENT
  Age: 32 Year
  Sex: Male

DRUGS (6)
  1. ACETAMINOPHEN [Suspect]
     Active Substance: ACETAMINOPHEN
     Indication: Product used for unknown indication
     Dosage: UNK
     Route: 045
  2. HEROIN [Suspect]
     Active Substance: DIAMORPHINE
     Indication: Product used for unknown indication
     Dosage: UNK
     Route: 045
  3. CAFFEINE [Suspect]
     Active Substance: CAFFEINE
     Indication: Product used for unknown indication
     Dosage: UNK
     Route: 045
  4. MORPHINE [Suspect]
     Active Substance: MORPHINE
     Indication: Product used for unknown indication
     Dosage: UNK
     Route: 045
  5. PAPAVERINE [Suspect]
     Active Substance: PAPAVERINE
     Indication: Product used for unknown indication
     Dosage: UNK
     Route: 045
  6. NOSCAPINE [Suspect]
     Active Substance: NOSCAPINE
     Indication: Product used for unknown indication
     Dosage: UNK
     Route: 045

REACTIONS (3)
  - Drug abuse [Not Recovered/Not Resolved]
  - Abdominal pain [Recovered/Resolved]
  - Hyperhidrosis [Recovered/Resolved]

NARRATIVE: CASE EVENT DATE: 20220301
